FAERS Safety Report 25964499 (Version 2)
Quarter: 2025Q4

REPORT INFORMATION
  Report Type: Spontaneous
  Country: CA (occurrence: CA)
  Receive Date: 20251027
  Receipt Date: 20251028
  Transmission Date: 20260118
  Serious: Yes (Hospitalization, Other)
  Sender: WINDER LABORATORY
  Company Number: CA-WINDERLABS-2025WILIT00003

PATIENT
  Age: 35 Year
  Sex: Female

DRUGS (7)
  1. MORPHINE SULFATE [Suspect]
     Active Substance: MORPHINE SULFATE
     Indication: Spinal anaesthesia
     Route: 037
  2. BUPIVACAINE [Suspect]
     Active Substance: BUPIVACAINE
     Indication: Spinal anaesthesia
     Dosage: 0.75% HYPERBARIC
     Route: 037
  3. FENTANYL [Suspect]
     Active Substance: FENTANYL
     Indication: Spinal anaesthesia
     Route: 037
  4. TENOFOVIR [Suspect]
     Active Substance: TENOFOVIR
     Indication: Hepatitis B
     Route: 065
  5. HYDROMORPHONE [Suspect]
     Active Substance: HYDROMORPHONE
     Indication: Postoperative analgesia
     Dosage: 1-2 MG EVERY 4 HOURS
     Route: 065
  6. HYDROMORPHONE [Suspect]
     Active Substance: HYDROMORPHONE
     Route: 048
  7. HYDROMORPHONE [Suspect]
     Active Substance: HYDROMORPHONE
     Route: 048

REACTIONS (3)
  - Subdural haematoma [Recovered/Resolved]
  - Post lumbar puncture syndrome [Recovered/Resolved]
  - Maternal exposure during delivery [Unknown]
